FAERS Safety Report 10846611 (Version 2)
Quarter: 2015Q2

REPORT INFORMATION
  Report Type: Spontaneous
  Country: RU (occurrence: RU)
  Receive Date: 20150220
  Receipt Date: 20150430
  Transmission Date: 20150821
  Serious: Yes (Hospitalization, Other)
  Sender: FDA-Public Use
  Company Number: RU-BAYER-2015-022606

PATIENT
  Sex: Female

DRUGS (2)
  1. VISANNA [Suspect]
     Active Substance: DIENOGEST
  2. QLAIRA [Suspect]
     Active Substance: DIENOGEST\ESTRADIOL VALERATE
     Indication: CONTRACEPTION
     Dosage: 1 DF, QD

REACTIONS (7)
  - Uterine leiomyoma [None]
  - Vaginal discharge [Recovered/Resolved]
  - Pain [Recovered/Resolved]
  - Uterine haemorrhage [Recovered/Resolved]
  - Genital haemorrhage [Recovered/Resolved]
  - Menorrhagia [Recovered/Resolved]
  - Product use issue [None]
